FAERS Safety Report 4615990-1 (Version None)
Quarter: 2005Q1

REPORT INFORMATION
  Report Type: 
  Country: None (occurrence: None)
  Receive Date: 20050323
  Receipt Date: 20050311
  Transmission Date: 20050727
  Serious: Yes (Hospitalization)
  Sender: FDA-Public Use
  Company Number: SE-JNJFOC-20050303401

PATIENT
  Age: 41 Year
  Sex: Female

DRUGS (6)
  1. REMICADE [Suspect]
     Route: 042
  2. REMICADE [Suspect]
     Route: 042
  3. METHOTREXATE [Concomitant]
  4. ORUDIS [Concomitant]
  5. FOLACIN [Concomitant]
  6. FOLACIN [Concomitant]

REACTIONS (5)
  - BONE DISORDER [None]
  - CYST [None]
  - IMPLANT SITE INFLAMMATION [None]
  - JOINT ARTHROPLASTY [None]
  - MUSCULOSKELETAL DISCOMFORT [None]
